FAERS Safety Report 8762474 (Version 1)
Quarter: 2012Q4

REPORT INFORMATION
  Report Type: Report from Study
  Country: US (occurrence: US)
  Receive Date: 20120830
  Receipt Date: 20120830
  Transmission Date: 20130627
  Serious: Yes (Death)
  Sender: FDA-Public Use
  Company Number: US-ABBOTT-12P-163-0973446-00

PATIENT
  Sex: Male
  Weight: 131.66 kg

DRUGS (7)
  1. NIASPAN [Suspect]
     Indication: CARDIAC DISORDER
     Dosage: At bedtime
     Dates: end: 201009
  2. ASA [Concomitant]
     Indication: PRODUCT USED FOR UNKNOWN INDICATION
  3. ISOSORBIDE [Concomitant]
     Indication: PRODUCT USED FOR UNKNOWN INDICATION
  4. ATENOLOL [Concomitant]
     Indication: PRODUCT USED FOR UNKNOWN INDICATION
  5. VICTOZA [Concomitant]
     Indication: PRODUCT USED FOR UNKNOWN INDICATION
  6. ACTOSE [Concomitant]
     Indication: PRODUCT USED FOR UNKNOWN INDICATION
  7. METFORMIN [Concomitant]
     Indication: PRODUCT USED FOR UNKNOWN INDICATION

REACTIONS (6)
  - Myocardial infarction [Fatal]
  - Flushing [Unknown]
  - Erythema [Unknown]
  - Pruritus [Unknown]
  - Feeling hot [Unknown]
  - Dizziness [Unknown]
